FAERS Safety Report 4264720-4 (Version None)
Quarter: 2004Q1

REPORT INFORMATION
  Report Type: 
  Country: None (occurrence: None)
  Receive Date: 20040102
  Receipt Date: 20031217
  Transmission Date: 20041129
  Serious: Yes (Other)
  Sender: FDA-Public Use
  Company Number: US_031299528

PATIENT
  Age: 39 Year
  Sex: Female
  Weight: 79 kg

DRUGS (1)
  1. HUMATROPE [Suspect]
     Indication: PITUITARY TUMOUR
     Dates: start: 20030731

REACTIONS (3)
  - FATIGUE [None]
  - LOSS OF CONSCIOUSNESS [None]
  - SOMNOLENCE [None]
